FAERS Safety Report 9078537 (Version 1)
Quarter: 2013Q1

REPORT INFORMATION
  Report Type: Report from Study
  Country: US (occurrence: US)
  Receive Date: 20130130
  Receipt Date: 20130130
  Transmission Date: 20140127
  Serious: No
  Sender: FDA-Public Use
  Company Number: US-ABBOTT-12P-163-0958712-00

PATIENT
  Sex: Male
  Weight: 82.63 kg

DRUGS (7)
  1. HUMIRA 40 MG/0.8 ML PEN [Suspect]
     Indication: RHEUMATOID ARTHRITIS
     Dates: start: 2008, end: 201010
  2. METHOTREXATE [Concomitant]
     Indication: RHEUMATOID ARTHRITIS
     Dates: start: 201206
  3. ZITHROMYCIN [Concomitant]
     Indication: NASOPHARYNGITIS
  4. FOLIC ACID [Concomitant]
     Indication: VITAMIN SUPPLEMENTATION
  5. COLCHICINE [Concomitant]
     Indication: GOUT
  6. LISINOPRIL [Concomitant]
     Indication: HYPERTENSION
  7. ULORIC [Concomitant]
     Indication: GOUT

REACTIONS (1)
  - Drug ineffective [Not Recovered/Not Resolved]
